FAERS Safety Report 7812682-2 (Version None)
Quarter: 2011Q4

REPORT INFORMATION
  Report Type: 
  Country: None (occurrence: None)
  Receive Date: 20111013
  Receipt Date: 20110930
  Transmission Date: 20120403
  Serious: Yes (Other)
  Sender: FDA-Public Use
  Company Number: SE-ELI_LILLY_AND_COMPANY-SE201106006801

PATIENT
  Sex: Male

DRUGS (4)
  1. OLANZAPINE [Suspect]
     Dosage: 405 MG,
     Route: 030
     Dates: start: 20110517, end: 20110517
  2. OLANZAPINE [Suspect]
     Dosage: 405 MG, UNK
     Route: 030
     Dates: start: 20110412, end: 20110412
  3. OLANZAPINE [Suspect]
     Dosage: 405 MG, UNK
     Dates: start: 20110621, end: 20110621
  4. OLANZAPINE [Suspect]
     Dosage: 300 MG, UNK
     Route: 030
     Dates: start: 20110328, end: 20110328

REACTIONS (9)
  - STUPOR [None]
  - SOMNOLENCE [None]
  - FATIGUE [None]
  - DELIRIUM [None]
  - ALTERED STATE OF CONSCIOUSNESS [None]
  - DYSSTASIA [None]
  - DIZZINESS [None]
  - DYSARTHRIA [None]
  - HALLUCINATION [None]
